FAERS Safety Report 7926262-1 (Version None)
Quarter: 2011Q4

REPORT INFORMATION
  Report Type: 
  Country: None (occurrence: None)
  Receive Date: 20111118
  Receipt Date: 20111115
  Transmission Date: 20120403
  Serious: Yes (Hospitalization)
  Sender: FDA-Public Use
  Company Number: US-BIOGENIDEC-2011BI035419

PATIENT
  Age: 70 Year
  Sex: Female

DRUGS (1)
  1. AVONEX [Suspect]
     Indication: MULTIPLE SCLEROSIS
     Route: 030
     Dates: start: 20070121

REACTIONS (5)
  - INJECTION SITE PAIN [None]
  - FEMUR FRACTURE [None]
  - ASTHENIA [None]
  - INFLUENZA LIKE ILLNESS [None]
  - FALL [None]
